FAERS Safety Report 7351790-X (Version None)
Quarter: 2011Q1

REPORT INFORMATION
  Report Type: 
  Country: None (occurrence: None)
  Receive Date: 20110315
  Receipt Date: 20101119
  Transmission Date: 20110831
  Serious: Yes (Hospitalization, Other)
  Sender: FDA-Public Use
  Company Number: US-BAYER-201031469NA

PATIENT
  Sex: Female
  Weight: 70.295 kg

DRUGS (17)
  1. IBUPROFEN [Concomitant]
  2. Q-10 CO-ENZYME [Concomitant]
  3. NECON [Concomitant]
  4. NAPROXEN [Concomitant]
  5. MUCINEX [Concomitant]
  6. ACIPHEX [Concomitant]
  7. INDOMETHACIN [Concomitant]
  8. YAZ [Suspect]
     Indication: ORAL CONTRACEPTION
     Dosage: UNK
     Route: 048
     Dates: start: 20090101, end: 20090301
  9. OCELLA [Suspect]
     Indication: ORAL CONTRACEPTION
     Dosage: UNK
     Route: 048
     Dates: start: 20090301, end: 20100101
  10. NABUMETONE [Concomitant]
  11. YAZ [Suspect]
     Indication: MENORRHAGIA
  12. YASMIN [Suspect]
     Indication: MENORRHAGIA
  13. OCELLA [Suspect]
     Indication: MENORRHAGIA
  14. VIOXX [Concomitant]
  15. YASMIN [Suspect]
     Indication: ORAL CONTRACEPTION
     Dosage: UNK
     Route: 048
     Dates: start: 20060301, end: 20080901
  16. MICROGESTIN 1.5/30 [Concomitant]
  17. AMBIEN [Concomitant]

REACTIONS (9)
  - CHEST PAIN [None]
  - NAUSEA [None]
  - ABDOMINAL PAIN [None]
  - DECREASED APPETITE [None]
  - COLITIS [None]
  - CHOLECYSTITIS ACUTE [None]
  - PULMONARY EMBOLISM [None]
  - CHOLELITHIASIS [None]
  - INTESTINAL ULCER [None]
